FAERS Safety Report 13141278 (Version 1)
Quarter: 2017Q1

REPORT INFORMATION
  Report Type: Spontaneous
  Country: US (occurrence: US)
  Receive Date: 20170124
  Receipt Date: 20170124
  Transmission Date: 20170428
  Serious: No
  Sender: FDA-Public Use
  Company Number: US-DEXPHARM-20161826

PATIENT
  Age: 85 Year
  Sex: Female
  Weight: 68.03 kg

DRUGS (2)
  1. OMEPRAZOLE. [Suspect]
     Active Substance: OMEPRAZOLE
     Indication: ULCER
     Dosage: 40 MG, QAM
     Route: 048
     Dates: start: 201606
  2. OMEPRAZOLE DELAYED RELEASE [Suspect]
     Active Substance: OMEPRAZOLE
     Indication: ULCER
     Dosage: 40 MG, QD IN THE EVENING
     Route: 048
     Dates: start: 201606

REACTIONS (2)
  - Overdose [Not Recovered/Not Resolved]
  - Constipation [Not Recovered/Not Resolved]

NARRATIVE: CASE EVENT DATE: 201606
